FAERS Safety Report 23998909 (Version 1)
Quarter: 2024Q2

REPORT INFORMATION
  Report Type: Spontaneous
  Country: US (occurrence: None)
  Receive Date: 20240620
  Receipt Date: 20240620
  Transmission Date: 20240716
  Serious: Yes (Hospitalization)
  Sender: FDA-Public Use
  Company Number: None

PATIENT
  Age: 42 Year
  Sex: Female
  Weight: 67.5 kg

DRUGS (5)
  1. ABILIFY [Suspect]
     Active Substance: ARIPIPRAZOLE
     Indication: Drug therapy
  2. IRON [Concomitant]
     Active Substance: IRON
  3. FOLIC ACID [Concomitant]
     Active Substance: FOLIC ACID
  4. MELATONIN [Concomitant]
     Active Substance: MELATONIN
  5. COD LIVER OIL [Concomitant]
     Active Substance: COD LIVER OIL

REACTIONS (6)
  - Hallucination [None]
  - Paranoia [None]
  - Weight increased [None]
  - Visual impairment [None]
  - Hypoaesthesia [None]
  - Exposure during pregnancy [None]

NARRATIVE: CASE EVENT DATE: 20080620
